FAERS Safety Report 6108992-X (Version None)
Quarter: 2009Q1

REPORT INFORMATION
  Report Type: 
  Country: None (occurrence: None)
  Receive Date: 20090310
  Receipt Date: 20090225
  Transmission Date: 20090719
  Serious: Yes (Life-Threatening, Hospitalization, Other)
  Sender: FDA-Public Use
  Company Number: US-ELI_LILLY_AND_COMPANY-US200902007167

PATIENT
  Sex: Female

DRUGS (5)
  1. FORTEO [Suspect]
  2. COUMADIN [Concomitant]
  3. POTASSIUM CHLORIDE [Concomitant]
  4. PREDNISONE [Concomitant]
  5. LASIX [Concomitant]

REACTIONS (3)
  - CARDIAC FAILURE CONGESTIVE [None]
  - CEREBROVASCULAR ACCIDENT [None]
  - THROMBOSIS [None]
